FAERS Safety Report 4614163-6 (Version None)
Quarter: 2005Q1

REPORT INFORMATION
  Report Type: 
  Country: None (occurrence: None)
  Receive Date: 20050316
  Receipt Date: 20050307
  Transmission Date: 20050727
  Serious: Yes (Hospitalization, Disabling)
  Sender: FDA-Public Use
  Company Number: 2005024189

PATIENT
  Age: 80 Year
  Sex: Female

DRUGS (16)
  1. SOLU-MEDROL [Suspect]
     Indication: ASTHMA
     Dosage: 40 MG, INTRAVENOUS
     Route: 042
     Dates: start: 20050117
  2. BUFFERIN [Suspect]
     Indication: ATRIAL FIBRILLATION
     Dosage: 81 MG (1 IN 1 D), ORAL
     Route: 048
     Dates: start: 20021119
  3. DIGOXIN [Suspect]
     Indication: ATRIAL FIBRILLATION
     Dosage: (1 IN 1 D), ORAL
     Route: 048
     Dates: start: 20021119
  4. SOLITA T (ELECTROLYTES NOS) [Suspect]
     Indication: ASTHMA
     Dosage: 200 ML (200 ML), INTRAVENOUS
     Route: 042
     Dates: start: 20050117
  5. GLIMEPIRIDE [Concomitant]
  6. ALLOPURINOL [Concomitant]
  7. FUROSEMIDE [Concomitant]
  8. SPIRONOLACTONE [Concomitant]
  9. OMEPRAZOLE [Concomitant]
  10. LEVOTHYROXINE SODIUM [Concomitant]
  11. BETAHISTINE HYDROCHLORIDE (BETAHISTINE HYDROCHLORIDE) [Concomitant]
  12. TULOBUTEROL HYDROCHLORIDE (TULOBUTEROL HYDROCHLORIDE) [Concomitant]
  13. MONTELUKAST SODIUM (MONTELUKAST SODIUM) [Concomitant]
  14. MENATETRENONE (MENATETRENONE) [Concomitant]
  15. SERRAPEPTASE (SERRAPEPTASE) [Concomitant]
  16. TOCOPHEROL (TOCOPHEROL) [Concomitant]

REACTIONS (3)
  - CEREBRAL INFARCTION [None]
  - SPUTUM RETENTION [None]
  - STRIDOR [None]
